FAERS Safety Report 13072236 (Version 2)
Quarter: 2017Q1

REPORT INFORMATION
  Report Type: Report from Study
  Country: US (occurrence: US)
  Receive Date: 20161229
  Receipt Date: 20170119
  Transmission Date: 20170428
  Serious: Yes (Hospitalization)
  Sender: FDA-Public Use
  Company Number: US-ACTELION-A-NJ2016-137536

PATIENT
  Age: 65 Year
  Sex: Female

DRUGS (4)
  1. ADCIRCA [Concomitant]
     Active Substance: TADALAFIL
  2. VELETRI [Suspect]
     Active Substance: EPOPROSTENOL
     Indication: PULMONARY ARTERIAL HYPERTENSION
     Dosage: 30 NG/KG, PER MIN
     Route: 042
     Dates: start: 20160518
  3. RIOCIGUAT [Concomitant]
     Active Substance: RIOCIGUAT
     Dosage: 2.5 MG, TID
     Route: 065
  4. LETAIRIS [Concomitant]
     Active Substance: AMBRISENTAN

REACTIONS (10)
  - Hypotension [Unknown]
  - Oesophageal irritation [Unknown]
  - Dehydration [Unknown]
  - Nausea [Unknown]
  - Infection [Unknown]
  - Diarrhoea [Unknown]
  - Abdominal discomfort [Unknown]
  - Flatulence [Recovered/Resolved]
  - Dizziness postural [Unknown]
  - Vomiting [Unknown]

NARRATIVE: CASE EVENT DATE: 20160622
